FAERS Safety Report 4789727-X (Version None)
Quarter: 2005Q4

REPORT INFORMATION
  Report Type: 
  Country: None (occurrence: None)
  Receive Date: 20051006
  Receipt Date: 20050906
  Transmission Date: 20060501
  Serious: Yes (Other)
  Sender: FDA-Public Use
  Company Number: PHBS2005BE13297

PATIENT
  Age: 27 Year
  Sex: Female

DRUGS (3)
  1. ELIDEL [Suspect]
     Indication: DERMATITIS ATOPIC
     Dosage: UNK, BID
     Route: 061
     Dates: start: 20040621, end: 20050801
  2. AERIUS [Concomitant]
  3. ESTIVAN [Concomitant]

REACTIONS (3)
  - FOLLICULAR MUCINOSIS [None]
  - RASH PAPULAR [None]
  - SKIN INFLAMMATION [None]
